FAERS Safety Report 5821299-0 (Version None)
Quarter: 2008Q3

REPORT INFORMATION
  Report Type: 
  Country: None (occurrence: None)
  Receive Date: 20080722
  Receipt Date: 20080722
  Transmission Date: 20090109
  Serious: No
  Sender: FDA-Public Use
  Company Number: None

PATIENT
  Age: 35 Year
  Sex: Female
  Weight: 61.2356 kg

DRUGS (2)
  1. MELOXICAM [Suspect]
     Indication: ANTIINFLAMMATORY THERAPY
     Dosage: ONE TABLET DAILY PO, SIX DAYS
     Route: 048
     Dates: start: 20080716, end: 20080721
  2. MELOXICAM [Suspect]
     Indication: TENDON RUPTURE
     Dosage: ONE TABLET DAILY PO, SIX DAYS
     Route: 048
     Dates: start: 20080716, end: 20080721

REACTIONS (1)
  - RASH PRURITIC [None]
